FAERS Safety Report 5574486-3 (Version None)
Quarter: 2007Q4

REPORT INFORMATION
  Report Type: 
  Country: None (occurrence: None)
  Receive Date: 20071227
  Receipt Date: 20071218
  Transmission Date: 20080405
  Serious: Yes (Hospitalization)
  Sender: FDA-Public Use
  Company Number: GB-ROCHE-537962

PATIENT
  Age: 67 Year
  Sex: Female
  Weight: 98 kg

DRUGS (10)
  1. ORLISTAT [Suspect]
     Indication: OBESITY
     Route: 048
     Dates: start: 20070726, end: 20071212
  2. LEVOTHYROXINE SODIUM [Concomitant]
     Indication: HYPOTHYROIDISM
     Dosage: DOSAGE: 375/ 400 MCG ALTERNATE DAYS
     Route: 048
  3. METFORMIN HCL [Concomitant]
     Indication: TYPE 2 DIABETES MELLITUS
     Route: 048
  4. ALLOPURINOL [Concomitant]
     Indication: GOUT
     Route: 048
  5. FUROSEMIDE [Concomitant]
     Indication: HYPERTENSION
     Route: 048
  6. PERINDOPRIL [Concomitant]
     Indication: HYPERTENSION
     Route: 048
  7. ATORVASTATIN [Concomitant]
     Route: 048
  8. SERETIDE [Concomitant]
     Indication: ASTHMA
     Route: 055
  9. NOVORAPID [Concomitant]
     Indication: TYPE 2 DIABETES MELLITUS
     Dosage: ROUTE: INJECTED
     Route: 050
  10. 1 CONCOMITANT DRUG [Concomitant]
     Indication: TYPE 2 DIABETES MELLITUS
     Dosage: DRUG: GLARGINE, ROUTE: INJECTED
     Route: 050

REACTIONS (4)
  - DYSPNOEA [None]
  - OEDEMA PERIPHERAL [None]
  - PERNICIOUS ANAEMIA [None]
  - RASH MACULAR [None]
